FAERS Safety Report 24572924 (Version 1)
Quarter: 2024Q4

REPORT INFORMATION
  Report Type: Spontaneous
  Country: US (occurrence: US)
  Receive Date: 20241101
  Receipt Date: 20241101
  Transmission Date: 20250115
  Serious: No
  Sender: Tarsus Pharmaceuticals
  Company Number: US-TARSUS PHARMACEUTICALS-TSP-US-2024-000505

PATIENT
  Age: 81 Year
  Sex: Female

DRUGS (1)
  1. XDEMVY [Suspect]
     Active Substance: LOTILANER
     Indication: Product used for unknown indication
     Dosage: INSTILL ONE DROP INTO BOTH EYES TWICE A DAY FOR SIX WEEKS
     Route: 047
     Dates: start: 20241015, end: 20241016

REACTIONS (5)
  - Eye pruritus [Unknown]
  - Pruritus [Unknown]
  - Ear pruritus [Unknown]
  - Condition aggravated [Unknown]
  - Eye irritation [Unknown]

NARRATIVE: CASE EVENT DATE: 20241001
